FAERS Safety Report 7096869-5 (Version None)
Quarter: 2010Q4

REPORT INFORMATION
  Report Type: 
  Country: None (occurrence: None)
  Receive Date: 20101103
  Receipt Date: 20101018
  Transmission Date: 20110411
  Serious: Yes (Death, Other)
  Sender: FDA-Public Use
  Company Number: 2009002564

PATIENT
  Age: 69 Year
  Sex: Male

DRUGS (9)
  1. ERLOTINIB HYDROCHLORIDE [Suspect]
     Indication: LUNG ADENOCARCINOMA
     Dosage: (150 MG, QD), ORAL
     Route: 048
     Dates: start: 20090630, end: 20090713
  2. OXYCONTIN [Concomitant]
  3. LOXONIN (LOXOPROFEN SODIUM) [Concomitant]
  4. MUCOSTA (REBAMAPRIDE) [Concomitant]
  5. PANTOSIN (PANTETHINE) [Concomitant]
  6. MAGLAX [Concomitant]
  7. NOVAMIN (PROCHLORPERAZINE) [Concomitant]
  8. KETOPROFEN [Concomitant]
  9. DECADRON [Concomitant]

REACTIONS (7)
  - ACUTE RESPIRATORY DISTRESS SYNDROME [None]
  - DECUBITUS ULCER [None]
  - METASTASES TO CENTRAL NERVOUS SYSTEM [None]
  - RASH [None]
  - SEPSIS [None]
  - SKIN EXFOLIATION [None]
  - STAPHYLOCOCCUS TEST POSITIVE [None]
